FAERS Safety Report 23713458 (Version 2)
Quarter: 2024Q2

REPORT INFORMATION
  Report Type: Report from Study
  Country: US (occurrence: None)
  Receive Date: 20240405
  Receipt Date: 20240411
  Transmission Date: 20240716
  Serious: Yes (Other)
  Sender: FDA-Public Use
  Company Number: 2024A081087

PATIENT
  Sex: Female

DRUGS (2)
  1. TAGRISSO [Suspect]
     Active Substance: OSIMERTINIB
     Route: 048
  2. TAGRISSO [Suspect]
     Active Substance: OSIMERTINIB
     Route: 048

REACTIONS (7)
  - Macular degeneration [Unknown]
  - Blindness unilateral [Unknown]
  - Deafness bilateral [Unknown]
  - Cataract [Unknown]
  - Fatigue [Unknown]
  - Palpitations [Unknown]
  - Diarrhoea [Unknown]
